FAERS Safety Report 19651738 (Version 1)
Quarter: 2021Q3

REPORT INFORMATION
  Report Type: Spontaneous
  Country: GB (occurrence: GB)
  Receive Date: 20210803
  Receipt Date: 20210803
  Transmission Date: 20211014
  Serious: Yes (Other)
  Sender: FDA-Public Use
  Company Number: GB-ORGANON-O2108GBR000018

PATIENT
  Age: 38 Year
  Sex: Male

DRUGS (12)
  1. CLOMIPRAMINE [Concomitant]
     Active Substance: CLOMIPRAMINE
     Indication: ILL-DEFINED DISORDER
     Dosage: UNK
  2. PARACETAMOL [Concomitant]
     Active Substance: ACETAMINOPHEN
     Indication: ILL-DEFINED DISORDER
     Dosage: UNK
  3. BACLOFEN. [Concomitant]
     Active Substance: BACLOFEN
     Indication: ILL-DEFINED DISORDER
     Dosage: UNK
  4. METFORMIN [Concomitant]
     Active Substance: METFORMIN HYDROCHLORIDE
     Indication: ILL-DEFINED DISORDER
     Dosage: UNK
  5. THIAMINE. [Concomitant]
     Active Substance: THIAMINE
     Indication: ILL-DEFINED DISORDER
     Dosage: UNK
  6. DIHYDROCODEINE TARTRATE [Concomitant]
     Active Substance: DIHYDROCODEINE BITARTRATE
     Indication: ILL-DEFINED DISORDER
     Dosage: UNK
  7. VITAMIN B COMPLEX [NICOTINAMIDE;PYRIDOXINE HYDROCHLORIDE;RIBOFLAVIN;TH [Concomitant]
     Indication: ILL-DEFINED DISORDER
     Dosage: UNK
  8. MIRTAZAPINE. [Suspect]
     Active Substance: MIRTAZAPINE
     Indication: OBSESSIVE-COMPULSIVE DISORDER
     Dosage: 15 MG ? TAKE ONE DAILY
     Route: 048
     Dates: start: 20210715, end: 20210729
  9. CLOMIPRAMINE HYDROCHLORIDE. [Suspect]
     Active Substance: CLOMIPRAMINE HYDROCHLORIDE
     Indication: OBSESSIVE-COMPULSIVE DISORDER
     Dosage: 50 MG CAPS ? TAKE TWO IN THE MORNING AND TAKE THREE AT NIGHT
     Route: 048
     Dates: start: 20200806
  10. CREON [Concomitant]
     Active Substance: PANCRELIPASE AMYLASE\PANCRELIPASE LIPASE\PANCRELIPASE PROTEASE
     Indication: ILL-DEFINED DISORDER
     Dosage: UNK
  11. PREGABALIN. [Concomitant]
     Active Substance: PREGABALIN
     Indication: ILL-DEFINED DISORDER
     Dosage: UNK
  12. LANSOPRAZOLE. [Concomitant]
     Active Substance: LANSOPRAZOLE
     Indication: ILL-DEFINED DISORDER
     Dosage: UNK

REACTIONS (1)
  - Serum serotonin increased [Recovering/Resolving]

NARRATIVE: CASE EVENT DATE: 20210725
